FAERS Safety Report 5640886-6 (Version None)
Quarter: 2008Q1

REPORT INFORMATION
  Report Type: 
  Country: None (occurrence: None)
  Receive Date: 20080227
  Receipt Date: 20080225
  Transmission Date: 20080703
  Serious: Yes (Death, Life-Threatening)
  Sender: FDA-Public Use
  Company Number: B0506357A

PATIENT
  Age: 42 Year
  Sex: Female

DRUGS (1)
  1. FLOLAN [Suspect]
     Indication: PULMONARY HYPERTENSION
     Route: 042
     Dates: start: 20060331, end: 20060405

REACTIONS (2)
  - ATRIAL FLUTTER [None]
  - CARDIAC FAILURE ACUTE [None]
